FAERS Safety Report 6586319-7 (Version None)
Quarter: 2010Q1

REPORT INFORMATION
  Report Type: 
  Country: None (occurrence: None)
  Receive Date: 20100217
  Receipt Date: 20100212
  Transmission Date: 20100710
  Serious: Yes (Hospitalization)
  Sender: FDA-Public Use
  Company Number: FR-MERCK-1002FRA00057

PATIENT
  Age: 59 Year
  Sex: Male

DRUGS (14)
  1. PRIMAXIN [Suspect]
     Route: 042
     Dates: start: 20090706, end: 20090722
  2. VANCOMYCIN HYDROCHLORIDE [Suspect]
     Route: 042
     Dates: start: 20090706, end: 20090722
  3. NOREPINEPHRINE [Suspect]
     Route: 042
  4. LASILIX [Suspect]
     Route: 042
     Dates: start: 20090706, end: 20090728
  5. PERFALGAN [Suspect]
     Route: 042
     Dates: start: 20090705, end: 20090707
  6. MIDAZOLAM [Concomitant]
     Route: 042
     Dates: start: 20090705, end: 20090726
  7. AMIKACINA [Concomitant]
     Route: 042
     Dates: start: 20090716, end: 20090722
  8. SUFENTANIL [Concomitant]
     Route: 042
     Dates: start: 20090705, end: 20090728
  9. PRETERAX (INDAPAMIDE (+) PERINDOPRIL ARGININE) [Concomitant]
     Indication: HYPERTENSION
     Route: 065
  10. AUGMENTIN [Concomitant]
     Route: 065
     Dates: start: 20090705, end: 20090705
  11. GENTAMICIN [Concomitant]
     Route: 065
     Dates: start: 20090705, end: 20090705
  12. TAVANIC [Concomitant]
     Route: 065
     Dates: start: 20090705, end: 20090705
  13. ROCEPHIN [Concomitant]
     Route: 065
     Dates: start: 20090705, end: 20090705
  14. TIBERAL [Concomitant]
     Route: 065
     Dates: start: 20090705, end: 20090705

REACTIONS (2)
  - ALVEOLITIS [None]
  - EOSINOPHILIA [None]
